FAERS Safety Report 25905562 (Version 1)
Quarter: 2025Q4

REPORT INFORMATION
  Report Type: Spontaneous
  Country: RS (occurrence: RS)
  Receive Date: 20251010
  Receipt Date: 20251010
  Transmission Date: 20260117
  Serious: Yes (Hospitalization)
  Sender: MYLAN
  Company Number: RS-MYLANLABS-2025M1084395

PATIENT
  Age: 20 Year
  Sex: Male

DRUGS (8)
  1. CLOZAPINE [Suspect]
     Active Substance: CLOZAPINE
     Indication: Product used for unknown indication
     Dosage: 25 MILLIGRAM, QD
     Dates: start: 202401, end: 202402
  2. CLOZAPINE [Suspect]
     Active Substance: CLOZAPINE
     Dosage: UNK (GRADUAL TITRATION UP TO 150 MG)
  3. CLOZAPINE [Suspect]
     Active Substance: CLOZAPINE
     Dosage: 150 MILLIGRAM, QD
     Dates: start: 202403, end: 202404
  4. CLOZAPINE [Suspect]
     Active Substance: CLOZAPINE
     Dosage: 200 MILLIGRAM, QD
     Dates: start: 202404, end: 202409
  5. CLOZAPINE [Suspect]
     Active Substance: CLOZAPINE
     Dosage: 300 MILLIGRAM, QD
     Dates: start: 202409, end: 202410
  6. CLOZAPINE [Suspect]
     Active Substance: CLOZAPINE
     Dosage: 350 MILLIGRAM, QD
     Dates: start: 202410, end: 202508
  7. CLOZAPINE [Suspect]
     Active Substance: CLOZAPINE
     Dosage: 425 MILLIGRAM, QD
     Dates: start: 202508
  8. VALPROATE [Concomitant]
     Active Substance: VALPROIC ACID
     Indication: Mood swings
     Dosage: 750 MILLIGRAM, QD

REACTIONS (7)
  - Condition aggravated [Recovering/Resolving]
  - Suicidal ideation [Recovering/Resolving]
  - Sedation [Not Recovered/Not Resolved]
  - Blood triglycerides increased [Not Recovered/Not Resolved]
  - Hepatic enzyme increased [Not Recovered/Not Resolved]
  - Salivary hypersecretion [Not Recovered/Not Resolved]
  - Somnolence [Not Recovered/Not Resolved]

NARRATIVE: CASE EVENT DATE: 20240101
